FAERS Safety Report 7347585-3 (Version None)
Quarter: 2011Q1

REPORT INFORMATION
  Report Type: 
  Country: None (occurrence: None)
  Receive Date: 20110311
  Receipt Date: 20110304
  Transmission Date: 20110831
  Serious: Yes (Hospitalization)
  Sender: FDA-Public Use
  Company Number: KR-ELI_LILLY_AND_COMPANY-KR201103001544

PATIENT
  Age: 64 Year
  Sex: Female

DRUGS (2)
  1. HUMALOG MIX 50/50 [Suspect]
     Dosage: 10 U, EACH EVENING
     Route: 058
     Dates: start: 20110127
  2. HUMALOG MIX 50/50 [Suspect]
     Indication: DIABETES MELLITUS
     Dosage: 20U MORNING, 10U EVENING
     Route: 058
     Dates: start: 20110127

REACTIONS (3)
  - DECREASED APPETITE [None]
  - HYPOPHAGIA [None]
  - SYNCOPE [None]
